FAERS Safety Report 4474577-4 (Version None)
Quarter: 2004Q4

REPORT INFORMATION
  Report Type: 
  Country: None (occurrence: None)
  Receive Date: 20041014
  Receipt Date: 20041005
  Transmission Date: 20050328
  Serious: Yes (Hospitalization)
  Sender: FDA-Public Use
  Company Number: PHBS2004TW13270

PATIENT
  Age: 60 Year
  Sex: Male

DRUGS (2)
  1. TEGRETOL [Suspect]
     Dosage: 200 MG/DAY
     Route: 048
     Dates: start: 20040914, end: 20040922
  2. HITOCOBAMIN-M [Concomitant]
     Dosage: 500 MG, BID
     Route: 065

REACTIONS (5)
  - CORNEAL ULCER [None]
  - HORDEOLUM [None]
  - HYPERSENSITIVITY [None]
  - MOUTH ULCERATION [None]
  - RASH [None]
